FAERS Safety Report 6879649-2 (Version None)
Quarter: 2010Q3

REPORT INFORMATION
  Report Type: 
  Country: None (occurrence: None)
  Receive Date: 20100728
  Receipt Date: 20091223
  Transmission Date: 20110219
  Serious: No
  Sender: FDA-Public Use
  Company Number: US-MYLANLABS-2009S1021894

PATIENT
  Age: 16 Year
  Sex: Male
  Weight: 79.38 kg

DRUGS (3)
  1. CLONIDINE HYDROCHLORIDE [Suspect]
     Indication: INSOMNIA
     Route: 048
     Dates: start: 20091022, end: 20091221
  2. RISPERDAL [Concomitant]
  3. STRATTERA [Concomitant]

REACTIONS (4)
  - AGGRESSION [None]
  - FRUSTRATION [None]
  - HEAD BANGING [None]
  - SCREAMING [None]
